FAERS Safety Report 18712921 (Version 1)
Quarter: 2021Q1

REPORT INFORMATION
  Report Type: Spontaneous
  Country: ES (occurrence: ES)
  Receive Date: 20210107
  Receipt Date: 20210107
  Transmission Date: 20210419
  Serious: Yes (Hospitalization)
  Sender: FDA-Public Use
  Company Number: NVSC2021ES000924

PATIENT
  Age: 17 Year
  Sex: Female

DRUGS (2)
  1. TOPAMAX [Suspect]
     Active Substance: TOPIRAMATE
     Indication: SUICIDE ATTEMPT
     Dosage: 12 DF, UNKNOWN (12 COMP)
     Route: 048
     Dates: start: 20201109
  2. ALPRAZOLAM 0.5 MG TABLETS [Suspect]
     Active Substance: ALPRAZOLAM
     Indication: SUICIDE ATTEMPT
     Dosage: 6 DF, UNKNOWN(6 COMP)
     Route: 048
     Dates: start: 20201109

REACTIONS (2)
  - Intentional overdose [Recovered/Resolved]
  - Sinus arrhythmia [Recovered/Resolved]

NARRATIVE: CASE EVENT DATE: 20201109
